FAERS Safety Report 7994217 (Version 3)
Quarter: 2013Q1

REPORT INFORMATION
  Report Type: Spontaneous
  Country: US (occurrence: US)
  Receive Date: 20110616
  Receipt Date: 20130309
  Transmission Date: 20140127
  Serious: Yes (Disabling, Other)
  Sender: FDA-Public Use
  Company Number: US-US-EMD SERONO, INC.-7064189

PATIENT
  Sex: Female

DRUGS (3)
  1. REBIF [Suspect]
     Indication: MULTIPLE SCLEROSIS
     Route: 058
     Dates: start: 20030303
  2. BACLOFEN [Concomitant]
     Indication: INCONTINENCE
  3. NEXIUM [Concomitant]
     Indication: DYSPEPSIA

REACTIONS (5)
  - Uterine cancer [Recovered/Resolved]
  - Cervix carcinoma [Recovered/Resolved]
  - Multiple sclerosis relapse [Not Recovered/Not Resolved]
  - Urinary tract infection [Unknown]
  - Pruritus [Recovering/Resolving]
